FAERS Safety Report 15620147 (Version 1)
Quarter: 2018Q4

REPORT INFORMATION
  Report Type: Spontaneous
  Country: DE (occurrence: DE)
  Receive Date: 20181115
  Receipt Date: 20181115
  Transmission Date: 20190205
  Serious: Yes (Hospitalization, Other)
  Sender: FDA-Public Use
  Company Number: DE-ASTRAZENECA-2018SF50024

PATIENT

DRUGS (5)
  1. EKLIRA [Suspect]
     Active Substance: ACLIDINIUM BROMIDE
     Dosage: 322
     Route: 055
  2. SYMBICORT [Suspect]
     Active Substance: BUDESONIDE\FORMOTEROL FUMARATE DIHYDRATE
     Dosage: 320/9 UNKNOWN UNKNOWN
     Route: 055
  3. FOSTER [Concomitant]
     Active Substance: BECLOMETHASONE\FORMOTEROL
     Dosage: 100/6 2X2
  4. DAXAS [Suspect]
     Active Substance: ROFLUMILAST
     Route: 048
  5. FASENRA [Suspect]
     Active Substance: BENRALIZUMAB
     Route: 065
     Dates: start: 201804

REACTIONS (5)
  - Osteoporosis [Unknown]
  - Asthma [Unknown]
  - Respiratory failure [Unknown]
  - Infection [Unknown]
  - Compression fracture [Unknown]

NARRATIVE: CASE EVENT DATE: 201308
